FAERS Safety Report 23150598 (Version 1)
Quarter: 2023Q4

REPORT INFORMATION
  Report Type: Spontaneous
  Country: CN (occurrence: CN)
  Receive Date: 20231106
  Receipt Date: 20231106
  Transmission Date: 20240110
  Serious: Yes (Hospitalization, Other)
  Sender: FDA-Public Use
  Company Number: CN-SA-SAC20231101001604

PATIENT
  Age: 72 Year
  Sex: Male
  Weight: 67 kg

DRUGS (3)
  1. ELOXATIN [Suspect]
     Active Substance: OXALIPLATIN
     Indication: Small intestine carcinoma
     Dosage: 130 MG, QD
     Route: 041
     Dates: start: 20231008, end: 20231008
  2. PACLITAXEL [Suspect]
     Active Substance: PACLITAXEL
     Indication: Small intestine carcinoma
     Dosage: 200 MG, QD
     Route: 041
     Dates: start: 20231008, end: 20231008
  3. FLUOROURACIL [Suspect]
     Active Substance: FLUOROURACIL
     Indication: Small intestine carcinoma
     Dosage: 2 G, QD
     Route: 041
     Dates: start: 20231008, end: 20231008

REACTIONS (7)
  - Feeding disorder [Recovering/Resolving]
  - Myelosuppression [Recovering/Resolving]
  - Anaemia [Recovering/Resolving]
  - Gastrointestinal disorder [Recovering/Resolving]
  - Vomiting [Recovering/Resolving]
  - Nausea [Recovering/Resolving]
  - Duodenal obstruction [Recovering/Resolving]

NARRATIVE: CASE EVENT DATE: 20231012
